FAERS Safety Report 20158881 (Version 1)
Quarter: 2021Q4

REPORT INFORMATION
  Report Type: Spontaneous
  Country: CA (occurrence: None)
  Receive Date: 20211208
  Receipt Date: 20211208
  Transmission Date: 20220303
  Serious: Yes (Other)
  Sender: FDA-Public Use
  Company Number: CA-ROCHE-2975502

PATIENT
  Age: 47 Year
  Sex: Male

DRUGS (1)
  1. ACTEMRA [Suspect]
     Active Substance: TOCILIZUMAB
     Indication: COVID-19 pneumonia
     Route: 042

REACTIONS (4)
  - Alanine aminotransferase increased [Unknown]
  - Blood albumin increased [Unknown]
  - Blood bilirubin decreased [Unknown]
  - Liver function test increased [Unknown]
